FAERS Safety Report 8951192 (Version 1)
Quarter: 2012Q4

REPORT INFORMATION
  Report Type: Report from Study
  Country: CA (occurrence: CA)
  Receive Date: 20121207
  Receipt Date: 20121207
  Transmission Date: 20130627
  Serious: No
  Sender: FDA-Public Use
  Company Number: CA-JNJFOC-20121112465

PATIENT
  Age: 48 Year
  Sex: Male
  Weight: 90 kg

DRUGS (3)
  1. REMICADE [Suspect]
     Indication: PSORIATIC ARTHROPATHY
     Route: 042
     Dates: start: 20120502
  2. VIMOVO [Concomitant]
     Route: 065
  3. TYLENOL [Concomitant]
     Indication: ARTHRALGIA
     Route: 065

REACTIONS (1)
  - Herpes zoster [Recovered/Resolved]
